FAERS Safety Report 15624198 (Version 9)
Quarter: 2019Q3

REPORT INFORMATION
  Report Type: Spontaneous
  Country: TW (occurrence: TW)
  Receive Date: 20181116
  Receipt Date: 20190824
  Transmission Date: 20191004
  Serious: Yes (Other)
  Sender: FDA-Public Use
  Company Number: TW-AMGEN-TWNSP2018145836

PATIENT
  Age: 60 Year
  Sex: Male

DRUGS (3)
  1. SALAZINE [Concomitant]
     Active Substance: SULFASALAZINE
     Dosage: 1 GRAM, QD
  2. ENBREL [Suspect]
     Active Substance: ETANERCEPT
     Indication: RHEUMATOID ARTHRITIS
     Dosage: 25 MILLIGRAM, 2 TIMES/WK
     Route: 058
     Dates: start: 20171011
  3. GENIQUIN [Concomitant]
     Dosage: 200 MILLIGRAM, QD

REACTIONS (4)
  - Aspartate aminotransferase increased [Recovered/Resolved]
  - Mycobacterium avium complex infection [Not Recovered/Not Resolved]
  - Alanine aminotransferase increased [Recovered/Resolved]
  - Hepatitis B DNA increased [Unknown]

NARRATIVE: CASE EVENT DATE: 20180929
